FAERS Safety Report 4282613-3 (Version None)
Quarter: 2004Q1

REPORT INFORMATION
  Report Type: 
  Country: None (occurrence: None)
  Receive Date: 20040130
  Receipt Date: 20021223
  Transmission Date: 20041129
  Serious: No
  Sender: FDA-Public Use
  Company Number: US-BRISTOL-MYERS SQUIBB COMPANY-12144101

PATIENT
  Age: 30 Year
  Sex: Male

DRUGS (2)
  1. SERZONE [Suspect]
     Indication: ANXIETY
     Route: 048
     Dates: start: 20021001, end: 20021101
  2. ATIVAN [Concomitant]

REACTIONS (1)
  - LIVER FUNCTION TEST ABNORMAL [None]
